FAERS Safety Report 6822267-2 (Version None)
Quarter: 2010Q3

REPORT INFORMATION
  Report Type: 
  Country: None (occurrence: None)
  Receive Date: 20100708
  Receipt Date: 20100706
  Transmission Date: 20110219
  Serious: Yes (Hospitalization)
  Sender: FDA-Public Use
  Company Number: GB-AMGEN-KDC422364

PATIENT
  Sex: Male
  Weight: 62 kg

DRUGS (2)
  1. PANITUMUMAB [Suspect]
     Indication: COLORECTAL CANCER
     Route: 042
     Dates: start: 20100302
  2. IRINOTECAN HCL [Suspect]
     Route: 042
     Dates: start: 20100302

REACTIONS (2)
  - ASCITES [None]
  - OEDEMA PERIPHERAL [None]
